FAERS Safety Report 12277407 (Version 4)
Quarter: 2017Q1

REPORT INFORMATION
  Report Type: Report from Study
  Country: FR (occurrence: FR)
  Receive Date: 20160418
  Receipt Date: 20170111
  Transmission Date: 20170428
  Serious: Yes (Hospitalization, Disabling)
  Sender: FDA-Public Use
  Company Number: FR-JNJFOC-20160411957

PATIENT
  Age: 16 Year
  Sex: Male
  Weight: 47.2 kg

DRUGS (5)
  1. BUDESONIDE. [Concomitant]
     Active Substance: BUDESONIDE
     Route: 065
  2. AZATHIOPRINE. [Concomitant]
     Active Substance: AZATHIOPRINE
     Route: 065
  3. REMICADE [Suspect]
     Active Substance: INFLIXIMAB
     Indication: CROHN^S DISEASE
     Route: 042
     Dates: start: 20070623, end: 20091009
  4. 5-ASA [Concomitant]
     Active Substance: MESALAMINE
     Route: 065
  5. HUMIRA [Concomitant]
     Active Substance: ADALIMUMAB
     Route: 065
     Dates: start: 20091019, end: 20161104

REACTIONS (1)
  - Anal stenosis [Recovered/Resolved]

NARRATIVE: CASE EVENT DATE: 20140925
